FAERS Safety Report 25982119 (Version 1)
Quarter: 2025Q4

REPORT INFORMATION
  Report Type: Spontaneous
  Country: US (occurrence: US)
  Receive Date: 20251031
  Receipt Date: 20251031
  Transmission Date: 20260118
  Serious: No
  Sender: EDENBRIDGE
  Company Number: US-EDENBRIDGE PHARMACEUTICALS, LLC-US-2024EDE000041

PATIENT
  Sex: Male

DRUGS (1)
  1. IVERMECTIN [Suspect]
     Active Substance: IVERMECTIN
     Indication: Scabies
     Route: 065

REACTIONS (1)
  - Product use in unapproved indication [Unknown]
